FAERS Safety Report 5117352-X (Version None)
Quarter: 2006Q3

REPORT INFORMATION
  Report Type: 
  Country: None (occurrence: None)
  Receive Date: 20060927
  Receipt Date: 20060927
  Transmission Date: 20061208
  Serious: Yes (Hospitalization)
  Sender: FDA-Public Use
  Company Number: None

PATIENT
  Sex: Female

DRUGS (1)
  1. CETUXIMAB  500MG - BRISTOL MYERS [Suspect]
     Dosage: 250MG WEEKLY IV
     Route: 042
     Dates: start: 20060914, end: 20060921

REACTIONS (3)
  - ABDOMINAL DISTENSION [None]
  - BACK PAIN [None]
  - OEDEMA PERIPHERAL [None]
